FAERS Safety Report 5059666-8 (Version None)
Quarter: 2006Q2

REPORT INFORMATION
  Report Type: 
  Country: None (occurrence: None)
  Receive Date: 20060629
  Receipt Date: 20060215
  Transmission Date: 20061013
  Serious: No
  Sender: FDA-Public Use
  Company Number: PHEH2006US01799

PATIENT
  Age: 87 Year
  Sex: Female

DRUGS (2)
  1. ENABLEX [Suspect]
     Indication: CYSTITIS
     Dosage: 7.5 MG QD
     Dates: start: 20060203
  2. PREVACID [Concomitant]

REACTIONS (2)
  - DRY MOUTH [None]
  - PRURITUS [None]
